FAERS Safety Report 4801057-6 (Version None)
Quarter: 2005Q4

REPORT INFORMATION
  Report Type: 
  Country: None (occurrence: None)
  Receive Date: 20051017
  Receipt Date: 20050630
  Transmission Date: 20060501
  Serious: Yes (Other)
  Sender: FDA-Public Use
  Company Number: PHEH2005US07379

PATIENT
  Age: 85 Year
  Sex: Male

DRUGS (4)
  1. ZOMETA [Suspect]
     Indication: MULTIPLE MYELOMA
     Dosage: 4MG QMO
     Dates: start: 20030801, end: 20050629
  2. MELPHALAN ^WELLCOME^ [Concomitant]
     Indication: MULTIPLE MYELOMA
     Dosage: 64MG X4DAYS
     Dates: start: 20031001, end: 20040101
  3. PREDNISONE [Concomitant]
     Dosage: 80MG X4DAYS
     Dates: start: 20031001, end: 20040101
  4. PREDNISONE [Concomitant]
     Dosage: ONE DOSE
     Dates: start: 20040901, end: 20040901

REACTIONS (14)
  - BONE DEBRIDEMENT [None]
  - BONE DISORDER [None]
  - BONE LESION [None]
  - BONE OPERATION [None]
  - ERYTHEMA [None]
  - GINGIVAL INFECTION [None]
  - JAW DISORDER [None]
  - OEDEMA MUCOSAL [None]
  - ORAL FUNGAL INFECTION [None]
  - OSTEOMYELITIS [None]
  - OSTEONECROSIS [None]
  - PAIN IN JAW [None]
  - PSEUDOMONAS INFECTION [None]
  - SOFT TISSUE INFECTION [None]
